FAERS Safety Report 8383611-0 (Version None)
Quarter: 2012Q2

REPORT INFORMATION
  Report Type: 
  Country: None (occurrence: None)
  Receive Date: 20120524
  Receipt Date: 20120517
  Transmission Date: 20120825
  Serious: Yes (Hospitalization, Other)
  Sender: FDA-Public Use
  Company Number: JP-PFIZER INC-2012088384

PATIENT
  Age: 52 Year
  Sex: Female

DRUGS (2)
  1. REVATIO [Suspect]
     Dosage: 20 MG, 3X/DAY
     Dates: start: 20110701
  2. REVATIO [Suspect]
     Indication: PULMONARY HYPERTENSION
     Dosage: UNK
     Route: 048
     Dates: start: 20050101, end: 20100406

REACTIONS (2)
  - ATRIAL SEPTAL DEFECT [None]
  - CARDIAC FAILURE [None]
